FAERS Safety Report 24730179 (Version 1)
Quarter: 2024Q4

REPORT INFORMATION
  Report Type: Spontaneous
  Country: ES (occurrence: ES)
  Receive Date: 20241213
  Receipt Date: 20241213
  Transmission Date: 20250115
  Serious: Yes (Other)
  Sender: ABBVIE
  Company Number: ES-RECORDATI-2024009422

PATIENT
  Age: 25 Year
  Sex: Male

DRUGS (3)
  1. CARIPRAZINE [Suspect]
     Active Substance: CARIPRAZINE
     Indication: Psychotic disorder
     Dosage: 1.5 MG, QD
     Route: 065
     Dates: start: 2024
  2. CARIPRAZINE [Suspect]
     Active Substance: CARIPRAZINE
     Indication: Psychotic disorder
     Dosage: 3 MG, QD
     Route: 065
     Dates: start: 2024, end: 2024
  3. CARIPRAZINE [Suspect]
     Active Substance: CARIPRAZINE
     Indication: Psychotic disorder
     Dosage: 1.5 MG, QD
     Route: 065
     Dates: start: 2024, end: 2024

REACTIONS (4)
  - Sedation complication [Recovered/Resolved]
  - Bulimia nervosa [Recovered/Resolved]
  - Weight increased [Unknown]
  - Product use in unapproved indication [Unknown]

NARRATIVE: CASE EVENT DATE: 20240101
